FAERS Safety Report 25821119 (Version 1)
Quarter: 2025Q3

REPORT INFORMATION
  Report Type: Spontaneous
  Country: AU (occurrence: AU)
  Receive Date: 20250919
  Receipt Date: 20250919
  Transmission Date: 20251021
  Serious: Yes (Other)
  Sender: ALKEM
  Company Number: AU-ALKEM LABORATORIES LIMITED-AU-ALKEM-2025-00549

PATIENT
  Age: 76 Year

DRUGS (1)
  1. DULOXETINE HYDROCHLORIDE [Suspect]
     Active Substance: DULOXETINE HYDROCHLORIDE
     Indication: Product used for unknown indication
     Route: 065

REACTIONS (11)
  - Gastrointestinal haemorrhage [Unknown]
  - Brain fog [Unknown]
  - Neuralgia [Unknown]
  - Pain [Unknown]
  - Abdominal pain [Unknown]
  - Cold sweat [Unknown]
  - Gait inability [Unknown]
  - Influenza like illness [Unknown]
  - Muscle tightness [Unknown]
  - Off label use [Unknown]
  - Product administration interrupted [Unknown]
